FAERS Safety Report 7902574-2 (Version None)
Quarter: 2011Q4

REPORT INFORMATION
  Report Type: 
  Country: None (occurrence: None)
  Receive Date: 20111108
  Receipt Date: 20111024
  Transmission Date: 20120403
  Serious: Yes (Other)
  Sender: FDA-Public Use
  Company Number: US-WATSON-2011-18350

PATIENT
  Age: 69 Year
  Sex: Male

DRUGS (2)
  1. CARBOPLATIN [Suspect]
     Indication: SMALL CELL LUNG CANCER STAGE UNSPECIFIED
     Dosage: 370 MG, OVER 30 MIN (2ND CYCLE)
  2. CARBOPLATIN [Suspect]
     Dosage: 370 MG DAY 1 OF 1ST CYCLE
     Route: 042

REACTIONS (1)
  - ATRIAL FLUTTER [None]
